FAERS Safety Report 8466176-4 (Version None)
Quarter: 2012Q2

REPORT INFORMATION
  Report Type: 
  Country: None (occurrence: None)
  Receive Date: 20120619
  Receipt Date: 20120531
  Transmission Date: 20120825
  Serious: Yes (Other)
  Sender: FDA-Public Use
  Company Number: 2012-00862

PATIENT
  Age: 52 Year
  Sex: Male

DRUGS (5)
  1. BENDROFLUAZIDE [Concomitant]
  2. LEVETIRACETAM [Suspect]
     Indication: PRODUCT USED FOR UNKNOWN INDICATION
     Dosage: 1000 MG (500 MG, 2 IN 1 D), ORAL
     Route: 048
  3. CANDESARTAN [Concomitant]
  4. OXCARBAZEPINE [Concomitant]
  5. AMLODIPINE [Concomitant]

REACTIONS (3)
  - PRODUCT SUBSTITUTION ISSUE [None]
  - IMPAIRED DRIVING ABILITY [None]
  - CONVULSION [None]
